FAERS Safety Report 9387906 (Version 1)
Quarter: 2013Q3

REPORT INFORMATION
  Report Type: Spontaneous
  Country: US (occurrence: US)
  Receive Date: 20130708
  Receipt Date: 20130708
  Transmission Date: 20140515
  Serious: No
  Sender: FDA-Public Use
  Company Number: US-BAYER-2013-082807

PATIENT
  Age: 39 Year
  Sex: Male
  Weight: 136.5 kg

DRUGS (4)
  1. ALEVE CAPLET [Suspect]
     Indication: ARTHRITIS
     Dosage: 1 DF, PRN
     Route: 048
     Dates: start: 201206
  2. ALEVE CAPLET [Suspect]
     Indication: ARTHRITIS
     Dosage: 2 DF, UNK
  3. ALEVE CAPLET [Suspect]
     Indication: ARTHRITIS
     Dosage: 3 DF, UNK
  4. VITAMIN D [Concomitant]

REACTIONS (4)
  - Somnolence [Not Recovered/Not Resolved]
  - Alopecia [Not Recovered/Not Resolved]
  - Drug ineffective [None]
  - Incorrect drug administration duration [None]
